FAERS Safety Report 14760423 (Version 1)
Quarter: 2018Q2

REPORT INFORMATION
  Report Type: Spontaneous
  Country: US (occurrence: US)
  Receive Date: 20180414
  Receipt Date: 20180414
  Transmission Date: 20180711
  Serious: No
  Sender: FDA-Public Use
  Company Number: US-009507513-1804USA005261

PATIENT
  Sex: Male

DRUGS (4)
  1. DIAZEPAM. [Concomitant]
     Active Substance: DIAZEPAM
  2. SYLATRON [Suspect]
     Active Substance: PEGINTERFERON ALFA-2B
     Indication: MALIGNANT MELANOMA
     Dosage: 0.42 ML, QW
     Route: 058
     Dates: start: 20170616
  3. LORATADINE. [Concomitant]
     Active Substance: LORATADINE
  4. MULTIVITE [Concomitant]
     Active Substance: VITAMINS

REACTIONS (2)
  - Inappropriate schedule of drug administration [Unknown]
  - Drug dose omission [Unknown]
